FAERS Safety Report 7739994-5 (Version None)
Quarter: 2011Q3

REPORT INFORMATION
  Report Type: 
  Country: None (occurrence: None)
  Receive Date: 20110909
  Receipt Date: 20110831
  Transmission Date: 20111222
  Serious: Yes (Other)
  Sender: FDA-Public Use
  Company Number: US-JNJFOC-20110902360

PATIENT
  Age: 27 Year
  Sex: Female

DRUGS (1)
  1. EXTRA STRENGTH TYLENOL PM [Suspect]
     Indication: INSOMNIA
     Dosage: INCREASED DOSE FROM 1-2 CAPLETS@HS, TO 2-3 CAPLETS, THEN 3-4 CAPLETS, FINALLY TO 6 CAPLETS/NIGHT
     Route: 048

REACTIONS (2)
  - DRUG WITHDRAWAL HEADACHE [None]
  - DEPENDENCE [None]
